FAERS Safety Report 5793738-5 (Version None)
Quarter: 2008Q2

REPORT INFORMATION
  Report Type: 
  Country: None (occurrence: None)
  Receive Date: 20080627
  Receipt Date: 20080623
  Transmission Date: 20081010
  Serious: Yes (Death, Hospitalization)
  Sender: FDA-Public Use
  Company Number: US-ASTRAZENECA-2008UW11651

PATIENT
  Age: 27741 Day
  Sex: Male

DRUGS (10)
  1. SYMBICORT [Suspect]
     Indication: CARDIAC ASTHMA
     Dosage: 160/4.5 SAMPLES
     Route: 055
     Dates: start: 20080129, end: 20080130
  2. ZITHROMAX [Suspect]
     Indication: COUGH
  3. LASIX [Suspect]
  4. DURICEF [Suspect]
  5. ALTACE [Concomitant]
  6. VYTORIN [Concomitant]
  7. HYDROCHLOROTHIAZIDE [Concomitant]
  8. PAXIL [Concomitant]
  9. ALLOPURINOL [Concomitant]
  10. ALOCAL DM [Concomitant]

REACTIONS (2)
  - ANGIOEDEMA [None]
  - RESPIRATORY FAILURE [None]
